FAERS Safety Report 8592758-5 (Version None)
Quarter: 2012Q3

REPORT INFORMATION
  Report Type: 
  Country: None (occurrence: None)
  Receive Date: 20120814
  Receipt Date: 20120808
  Transmission Date: 20120928
  Serious: Yes (Other)
  Sender: FDA-Public Use
  Company Number: BR-PFIZER INC-2012194228

PATIENT
  Age: 57 Year
  Sex: Female

DRUGS (4)
  1. LIPITOR [Suspect]
     Indication: BLOOD CHOLESTEROL
     Dosage: 10 MG (HALF TABLET OF 20MG), 1X/DAY
     Route: 048
     Dates: start: 20071001, end: 20080101
  2. CONDROFLEX [Concomitant]
     Indication: ARTHRALGIA
     Dosage: TAKES IT FOR 3 MONTHS AND REMAINED 2 MONTHS WITHOUT TAKING IT, ONE SACHET ON ALTERNATE DAYS
     Dates: start: 20090101
  3. VYTORIN [Concomitant]
     Indication: BLOOD CHOLESTEROL
     Dosage: ONE TABLET DAILY
     Dates: start: 20080101, end: 20120807
  4. CONDROFLEX [Concomitant]
     Indication: OSTEOARTHRITIS

REACTIONS (5)
  - BLOOD PRESSURE FLUCTUATION [None]
  - GAIT DISTURBANCE [None]
  - OSTEOARTHRITIS [None]
  - FOOT FRACTURE [None]
  - HEADACHE [None]
